FAERS Safety Report 6924230-X (Version None)
Quarter: 2010Q3

REPORT INFORMATION
  Report Type: 
  Country: None (occurrence: None)
  Receive Date: 20100811
  Receipt Date: 20100811
  Transmission Date: 20110219
  Serious: Yes (Hospitalization)
  Sender: FDA-Public Use
  Company Number: None

PATIENT
  Age: 4 Year
  Sex: Female
  Weight: 13.6 kg

DRUGS (5)
  1. ENBREL [Suspect]
     Indication: JUVENILE ARTHRITIS
     Dosage: 12.5 MG TWICE WEEKLY
     Dates: start: 20080922, end: 20100726
  2. METHOTREXATE [Suspect]
     Indication: JUVENILE ARTHRITIS
     Dosage: 7.5 MG WEEKLY
     Dates: start: 20080922, end: 20100726
  3. PREDNISOLONE [Concomitant]
  4. NAPROXEN [Concomitant]
  5. FOLIC ACID [Concomitant]

REACTIONS (2)
  - EPSTEIN-BARR VIRUS TEST POSITIVE [None]
  - HODGKIN'S DISEASE [None]
